FAERS Safety Report 10888170 (Version 2)
Quarter: 2015Q2

REPORT INFORMATION
  Report Type: Spontaneous
  Country: US (occurrence: US)
  Receive Date: 20150304
  Receipt Date: 20150415
  Transmission Date: 20150821
  Serious: Yes (Hospitalization, Disabling, Other)
  Sender: FDA-Public Use
  Company Number: US-009507513-1503USA000426

PATIENT
  Age: 55 Year
  Sex: Male
  Weight: 69.84 kg

DRUGS (3)
  1. EMEND [Suspect]
     Active Substance: APREPITANT
     Indication: PROPHYLAXIS OF NAUSEA AND VOMITING
     Dosage: 150 MG, ONCE, ONE DOSE
     Route: 042
     Dates: start: 20150217, end: 20150217
  2. FLUOROURACIL (+) LEUCOVORIN CALCIUM (+) OXALIPLATIN [Concomitant]
     Dosage: UNK
  3. EMEND [Suspect]
     Active Substance: APREPITANT
     Indication: PREMEDICATION

REACTIONS (3)
  - Dyspnoea [Recovered/Resolved]
  - Back pain [Recovered/Resolved]
  - Abdominal pain [Not Recovered/Not Resolved]

NARRATIVE: CASE EVENT DATE: 20150217
